FAERS Safety Report 7585671-3 (Version None)
Quarter: 2011Q2

REPORT INFORMATION
  Report Type: 
  Country: None (occurrence: None)
  Receive Date: 20110624
  Receipt Date: 20110610
  Transmission Date: 20111010
  Serious: Yes (Hospitalization)
  Sender: FDA-Public Use
  Company Number: 2010MA005505

PATIENT
  Age: 37 Year
  Sex: Male

DRUGS (2)
  1. CLOZARIL [Suspect]
     Indication: SCHIZOPHRENIA
     Dosage: PO
     Route: 048
     Dates: start: 19950307
  2. FEVERALL [Suspect]
     Dosage: 30 DF, PO
     Route: 048
     Dates: start: 20100303

REACTIONS (2)
  - OVERDOSE [None]
  - ACUTE HEPATIC FAILURE [None]
